FAERS Safety Report 6446195-X (Version None)
Quarter: 2009Q4

REPORT INFORMATION
  Report Type: 
  Country: None (occurrence: None)
  Receive Date: 20091119
  Receipt Date: 20091110
  Transmission Date: 20100525
  Serious: Yes (Hospitalization, Other)
  Sender: FDA-Public Use
  Company Number: US-JNJFOC-20070503573

PATIENT
  Sex: Female
  Weight: 52.62 kg

DRUGS (6)
  1. TOPAMAX [Suspect]
     Indication: MUSCLE SPASMS
     Route: 048
  2. REBIF [Suspect]
     Route: 058
  3. REBIF [Suspect]
     Indication: MULTIPLE SCLEROSIS
     Route: 058
  4. BACLOFEN [Concomitant]
     Indication: MUSCLE SPASMS
  5. CORTICOSTEROIDS [Concomitant]
     Indication: MULTIPLE SCLEROSIS RELAPSE
     Route: 065
  6. DIAZEPAM [Concomitant]
     Indication: MUSCLE SPASMS
     Route: 065

REACTIONS (1)
  - LOSS OF CONSCIOUSNESS [None]
